FAERS Safety Report 4294753-3 (Version None)
Quarter: 2004Q1

REPORT INFORMATION
  Report Type: 
  Country: None (occurrence: None)
  Receive Date: 20040211
  Receipt Date: 20031204
  Transmission Date: 20041129
  Serious: Yes (Death)
  Sender: FDA-Public Use
  Company Number: US_000846413

PATIENT
  Age: 69 Year
  Sex: Male
  Weight: 61 kg

DRUGS (9)
  1. GEMZAR [Suspect]
     Indication: NON-SMALL CELL LUNG CANCER
     Dosage: 1500 MG/OTHER
     Dates: start: 20000607, end: 20000704
  2. NAVELBINE [Concomitant]
  3. NASEA (NASEA) [Concomitant]
  4. ALPRAZOLAM [Concomitant]
  5. DEPAS (ETIZOLAM) [Concomitant]
  6. GASEN (VOGLIBOSE) [Concomitant]
  7. VOLTAREN [Concomitant]
  8. GASLON (IRSOGLADINE MALEATE) [Concomitant]
  9. MYONAL (EPERISONE HYDROCHLORIDE) [Concomitant]

REACTIONS (8)
  - CARCINOMA [None]
  - DISEASE PROGRESSION [None]
  - DYSPNOEA EXERTIONAL [None]
  - HYPOXIA [None]
  - INTERSTITIAL LUNG DISEASE [None]
  - PCO2 DECREASED [None]
  - PO2 DECREASED [None]
  - PYREXIA [None]
